FAERS Safety Report 6355708-8 (Version None)
Quarter: 2009Q3

REPORT INFORMATION
  Report Type: 
  Country: None (occurrence: None)
  Receive Date: 20090910
  Receipt Date: 20090826
  Transmission Date: 20100115
  Serious: Yes (Hospitalization)
  Sender: FDA-Public Use
  Company Number: DSJ-2009-11157

PATIENT
  Age: 82 Year
  Sex: Male

DRUGS (5)
  1. BENICAR [Suspect]
     Indication: HYPERTENSION
     Dosage: 40 MG (1 IN 1 D),
     Dates: start: 20071201, end: 20090801
  2. ATORVASTATIN CALCIUM (ATORVASTATIN CALCIUM) (ATORVASTATIN CALCIUM) [Concomitant]
  3. ACETYLSALICYLIC ACID SRT [Concomitant]
  4. FLUTICASONE (FLUTICASONE) (FLUTICASONE) [Concomitant]
  5. SALMETEROL XINAFOATE (SALMETEROL XINAFOATE) (SALMETEROL XINAFOATE) [Concomitant]

REACTIONS (2)
  - DRUG INEFFECTIVE [None]
  - NASOPHARYNGITIS [None]
